FAERS Safety Report 20851356 (Version 2)
Quarter: 2022Q2

REPORT INFORMATION
  Report Type: Spontaneous
  Country: US (occurrence: US)
  Receive Date: 20220519
  Receipt Date: 20220530
  Transmission Date: 20220721
  Serious: No
  Sender: FDA-Public Use
  Company Number: US-JNJFOC-20220537806

PATIENT
  Age: 35 Year
  Sex: Female

DRUGS (1)
  1. SPRAVATO [Suspect]
     Active Substance: ESKETAMINE
     Indication: Major depression
     Route: 045
     Dates: start: 20220504, end: 20220506

REACTIONS (4)
  - Chest pain [Unknown]
  - Palpitations [Unknown]
  - Underdose [Unknown]
  - Dizziness [Unknown]
